FAERS Safety Report 10219530 (Version 1)
Quarter: 2014Q1

REPORT INFORMATION
  Report Type: Spontaneous
  Country: US (occurrence: None)
  Receive Date: 20140306
  Receipt Date: 20140306
  Transmission Date: 20141002
  Serious: Yes (Other)
  Sender: FDA-Public Use
  Company Number: 163-21880-13100648

PATIENT
  Age: 77 Year
  Sex: Female

DRUGS (9)
  1. REVLIMID (LENALIDOMIDE) (25 MILLIGRAM, CAPSULES) [Suspect]
     Indication: PLASMA CELL MYELOMA
     Route: 048
     Dates: start: 201308
  2. PROTONIX [Concomitant]
  3. XANAX (ALPRAZOLAM) [Concomitant]
  4. AMBIEN (ZOLPIDEM TARTRATE) [Concomitant]
  5. REMERON (MIRTAZAPINE) [Concomitant]
  6. DEXAMETHASONE [Concomitant]
  7. LEVOFLOXACIN [Concomitant]
  8. VALTREX (VALACICLOVIR HYDROCHLORIDE) [Concomitant]
  9. LEXAPRO (ESCITALOPRAM OXALATE) [Concomitant]

REACTIONS (2)
  - Pulmonary embolism [None]
  - Thrombosis [None]
